FAERS Safety Report 6841028-1 (Version None)
Quarter: 2010Q3

REPORT INFORMATION
  Report Type: 
  Country: None (occurrence: None)
  Receive Date: 20100714
  Receipt Date: 20070623
  Transmission Date: 20110219
  Serious: Yes (Other)
  Sender: FDA-Public Use
  Company Number: US-PFIZER INC-2007052910

PATIENT
  Sex: Male
  Weight: 84.09 kg

DRUGS (10)
  1. CHANTIX [Suspect]
     Indication: SMOKING CESSATION THERAPY
     Dates: start: 20070620
  2. XOPENEX [Suspect]
     Indication: RESPIRATORY DISORDER
  3. ACETYLCYSTEINE [Suspect]
     Indication: RESPIRATORY DISORDER
  4. ACIPHEX [Concomitant]
  5. ADVAIR DISKUS 100/50 [Concomitant]
     Dosage: 250/50
  6. CLONAZEPAM [Concomitant]
  7. ZYPREXA [Concomitant]
  8. MIRALAX [Concomitant]
  9. CENTRUM [Concomitant]
  10. ASPIRIN [Concomitant]

REACTIONS (6)
  - ANXIETY [None]
  - ASTHENIA [None]
  - FEELING ABNORMAL [None]
  - HEADACHE [None]
  - MENTAL IMPAIRMENT [None]
  - NERVOUSNESS [None]
